FAERS Safety Report 16486925 (Version 1)
Quarter: 2019Q3

REPORT INFORMATION
  Report Type: Spontaneous
  Country: US (occurrence: US)
  Receive Date: 20190625
  Receipt Date: 20190625
  Transmission Date: 20191004
  Serious: No
  Sender: FDA-Public Use
  Company Number: None

PATIENT
  Age: 48 Year
  Sex: Male

DRUGS (2)
  1. COSENTYX [Suspect]
     Active Substance: SECUKINUMAB
     Indication: PSORIATIC ARTHROPATHY
     Dosage: ?          OTHER FREQUENCY:WEEKLY;?
     Route: 058
     Dates: start: 20190610
  2. ENBREL [Concomitant]
     Active Substance: ETANERCEPT
     Dates: start: 20171102, end: 20190601

REACTIONS (3)
  - Pain [None]
  - Inappropriate schedule of product administration [None]
  - Withdrawal syndrome [None]

NARRATIVE: CASE EVENT DATE: 20190625
